FAERS Safety Report 9523097 (Version 1)
Quarter: 2013Q3

REPORT INFORMATION
  Report Type: Spontaneous
  Country: US (occurrence: US)
  Receive Date: 20130913
  Receipt Date: 20130913
  Transmission Date: 20140515
  Serious: Yes (Other)
  Sender: FDA-Public Use
  Company Number: US-PFIZER INC-2013264230

PATIENT
  Age: 84 Year
  Sex: Male

DRUGS (2)
  1. LYRICA [Suspect]
     Indication: FIBROMYALGIA
     Dosage: UNK
     Dates: start: 201309
  2. EMSAM [Suspect]
     Indication: DEPRESSION
     Dosage: UNK
     Route: 062
     Dates: start: 2013

REACTIONS (2)
  - Suicidal ideation [Unknown]
  - Malaise [Unknown]
